FAERS Safety Report 6238094-3 (Version None)
Quarter: 2009Q2

REPORT INFORMATION
  Report Type: 
  Country: None (occurrence: None)
  Receive Date: 20090622
  Receipt Date: 20090617
  Transmission Date: 20091009
  Serious: Yes (Life-Threatening)
  Sender: FDA-Public Use
  Company Number: ZA-ASTRAZENECA-2009SE01805

PATIENT
  Sex: Female

DRUGS (1)
  1. DIPRIVAN [Suspect]
     Indication: SEDATIVE THERAPY
     Route: 042

REACTIONS (2)
  - COMA [None]
  - RESPIRATORY ARREST [None]
